FAERS Safety Report 23007916 (Version 2)
Quarter: 2023Q4

REPORT INFORMATION
  Report Type: Other
  Country: US (occurrence: None)
  Receive Date: 20230929
  Receipt Date: 20231221
  Transmission Date: 20240110
  Serious: Yes (Hospitalization)
  Sender: FDA-Public Use
  Company Number: US-ROCHE-3425392

PATIENT
  Age: 37 Year
  Sex: Female
  Weight: 118.04 kg

DRUGS (4)
  1. OCREVUS [Suspect]
     Active Substance: OCRELIZUMAB
     Indication: Relapsing-remitting multiple sclerosis
     Dosage: THEN 600 MG EVERY 6 MONTHS. PREVIOUS DATE OF TREATMENT, ANTICIPATED DATE OF TREATMENT = 24/FEB/2023,
     Route: 042
     Dates: start: 20230210
  2. TESTOSTERONE [Suspect]
     Active Substance: TESTOSTERONE
     Indication: Hormone therapy
     Route: 065
     Dates: start: 202303
  3. DIAMOX SEQUELS [Concomitant]
     Active Substance: ACETAZOLAMIDE
  4. VICODIN [Concomitant]
     Active Substance: ACETAMINOPHEN\HYDROCODONE BITARTRATE

REACTIONS (3)
  - Intestinal obstruction [Recovered/Resolved]
  - Abscess [Recovered/Resolved]
  - Decreased appetite [Unknown]

NARRATIVE: CASE EVENT DATE: 20230301
